FAERS Safety Report 10463611 (Version 6)
Quarter: 2015Q2

REPORT INFORMATION
  Report Type: Report from Study
  Country: BR (occurrence: BR)
  Receive Date: 20140919
  Receipt Date: 20150505
  Transmission Date: 20150821
  Serious: Yes (Hospitalization)
  Sender: FDA-Public Use
  Company Number: BR-SA-2014SA127029

PATIENT
  Age: 62 Year
  Sex: Female
  Weight: 80 kg

DRUGS (11)
  1. NEXIUM [Concomitant]
     Active Substance: ESOMEPRAZOLE MAGNESIUM
  2. NEURONTIN [Concomitant]
     Active Substance: GABAPENTIN
     Indication: TYPE 2 DIABETES MELLITUS
  3. PLAVIX [Concomitant]
     Active Substance: CLOPIDOGREL BISULFATE
     Indication: COAGULOPATHY
  4. CLIKSTAR [Concomitant]
     Active Substance: CLIKSTAR
     Indication: DEVICE THERAPY
  5. NORVASC [Concomitant]
     Active Substance: AMLODIPINE BESYLATE
  6. CONCOR [Concomitant]
     Active Substance: BISOPROLOL FUMARATE
     Indication: CARDIAC DISORDER
  7. LIPITOR [Concomitant]
     Active Substance: ATORVASTATIN CALCIUM
     Indication: CARDIOVASCULAR INSUFFICIENCY
  8. VASOGARD [Concomitant]
     Active Substance: CILOSTAZOL
     Indication: CARDIOVASCULAR INSUFFICIENCY
  9. CIPROFLOXACIN. [Concomitant]
     Active Substance: CIPROFLOXACIN
  10. LANTUS [Suspect]
     Active Substance: INSULIN GLARGINE
     Indication: TYPE 2 DIABETES MELLITUS
     Dosage: CARTRIDGE
     Route: 058
     Dates: start: 2004
  11. AAS [Concomitant]
     Active Substance: ASPIRIN

REACTIONS (6)
  - Fall [Unknown]
  - Femur fracture [Recovered/Resolved]
  - Skin ulcer [Not Recovered/Not Resolved]
  - Hyperglycaemia [Recovered/Resolved]
  - Pain [Recovered/Resolved]
  - Intestinal ischaemia [Recovered/Resolved]

NARRATIVE: CASE EVENT DATE: 2009
